FAERS Safety Report 19390812 (Version 4)
Quarter: 2022Q4

REPORT INFORMATION
  Report Type: Spontaneous
  Country: IT (occurrence: IT)
  Receive Date: 20210608
  Receipt Date: 20221122
  Transmission Date: 20230112
  Serious: Yes (Life-Threatening, Hospitalization, Other)
  Sender: FDA-Public Use
  Company Number: NVSC2021IT128378

PATIENT
  Age: 55 Year
  Sex: Female

DRUGS (6)
  1. ACETAMINOPHEN [Suspect]
     Active Substance: ACETAMINOPHEN
     Indication: Headache
     Dosage: UNK
     Route: 065
  2. BROMAZEPAM [Suspect]
     Active Substance: BROMAZEPAM
     Indication: Product used for unknown indication
     Dosage: UNK
     Route: 065
  3. CARBAMAZEPINE [Suspect]
     Active Substance: CARBAMAZEPINE
     Indication: Headache
     Dosage: UNK
     Route: 065
  4. TRAZODONE [Suspect]
     Active Substance: TRAZODONE HYDROCHLORIDE
     Indication: Product used for unknown indication
     Dosage: UNK
     Route: 065
  5. MIDOMAFETAMINE [Concomitant]
     Active Substance: MIDOMAFETAMINE
     Indication: Product used for unknown indication
     Dosage: UNK
     Route: 065
  6. MORPHINE [Concomitant]
     Active Substance: MORPHINE
     Indication: Product used for unknown indication
     Dosage: UNK
     Route: 065

REACTIONS (11)
  - Hypothermia [Recovered/Resolved]
  - Mydriasis [Unknown]
  - Bradypnoea [Unknown]
  - Hypotension [Recovered/Resolved]
  - Hypokalaemia [Unknown]
  - Hepatitis acute [Recovered/Resolved]
  - Atrial fibrillation [Recovered/Resolved]
  - Bradycardia [Unknown]
  - Loss of consciousness [Recovered/Resolved]
  - Overdose [Unknown]
  - Product use in unapproved indication [Unknown]
